FAERS Safety Report 14963364 (Version 26)
Quarter: 2022Q4

REPORT INFORMATION
  Report Type: Report from Study
  Country: GB (occurrence: GB)
  Receive Date: 20180601
  Receipt Date: 20221229
  Transmission Date: 20230112
  Serious: Yes (Death, Hospitalization, Other)
  Sender: FDA-Public Use
  Company Number: GB-ROCHE-1745230

PATIENT
  Age: 67 Year
  Sex: Female

DRUGS (32)
  1. PACLITAXEL [Suspect]
     Active Substance: PACLITAXEL
     Indication: HER2 positive breast cancer
     Dosage: 141 MG, MONTHLY
     Route: 042
     Dates: start: 20151124, end: 20151221
  2. PACLITAXEL [Suspect]
     Active Substance: PACLITAXEL
     Dosage: 141 MG
     Route: 042
     Dates: start: 20161122
  3. EXEMESTANE [Suspect]
     Active Substance: EXEMESTANE
     Indication: Breast cancer metastatic
     Dosage: 25 MG, 1X/DAY
     Route: 048
     Dates: start: 20160531, end: 20160610
  4. EXEMESTANE [Suspect]
     Active Substance: EXEMESTANE
     Dosage: UNK, 1X/DAY
     Route: 048
     Dates: end: 20160712
  5. EXEMESTANE [Suspect]
     Active Substance: EXEMESTANE
     Dosage: 1000 MG
     Route: 048
     Dates: start: 20161122, end: 20161213
  6. CARBOPLATIN [Suspect]
     Active Substance: CARBOPLATIN
     Indication: Triple negative breast cancer
     Dosage: UNK
  7. DOXORUBICIN [Suspect]
     Active Substance: DOXORUBICIN
     Indication: Triple negative breast cancer
  8. EPIRUBICIN HYDROCHLORIDE [Suspect]
     Active Substance: EPIRUBICIN HYDROCHLORIDE
     Indication: Triple negative breast cancer
  9. FLUOROURACIL [Suspect]
     Active Substance: FLUOROURACIL
     Indication: Triple negative breast cancer
  10. GEMCITABINE HYDROCHLORIDE [Suspect]
     Active Substance: GEMCITABINE HYDROCHLORIDE
  11. HYALURONIDASE (HUMAN RECOMBINANT)\TRASTUZUMAB [Suspect]
     Active Substance: HYALURONIDASE (HUMAN RECOMBINANT)\TRASTUZUMAB
     Indication: HER2 positive breast cancer
     Dosage: 600 MG, EVERY 3 WEEKS
     Route: 058
     Dates: start: 20151124, end: 20151221
  12. HYALURONIDASE (HUMAN RECOMBINANT)\TRASTUZUMAB [Suspect]
     Active Substance: HYALURONIDASE (HUMAN RECOMBINANT)\TRASTUZUMAB
     Dosage: 600 MG, EVERY 3 WEEKS
     Route: 058
     Dates: start: 20160531, end: 20161115
  13. ADALIMUMAB [Suspect]
     Active Substance: ADALIMUMAB
     Dosage: 40 MG EVERY 2 WEEKS
     Route: 058
     Dates: start: 20151124
  14. ADALIMUMAB [Suspect]
     Active Substance: ADALIMUMAB
     Dosage: 40 MG EVERY 2 WEEKS
     Route: 058
  15. TAMOXIFEN [Suspect]
     Active Substance: TAMOXIFEN
     Indication: HER2 positive breast cancer
     Dosage: 20 MG, 1X/DAY
     Route: 048
     Dates: start: 20160712, end: 20160802
  16. TAMOXIFEN [Suspect]
     Active Substance: TAMOXIFEN
     Dosage: 600 MG, EVERY 3 WEEKS
     Route: 048
  17. CAPECITABINE [Suspect]
     Active Substance: CAPECITABINE
     Indication: HER2 positive breast cancer
     Dosage: 1500 MG
     Route: 048
     Dates: start: 20161122, end: 20161213
  18. CAPECITABINE [Suspect]
     Active Substance: CAPECITABINE
     Dosage: 1000 MG
     Route: 048
     Dates: start: 20161122, end: 20161213
  19. CAPECITABINE [Suspect]
     Active Substance: CAPECITABINE
     Dosage: 1300 MG
     Route: 048
     Dates: start: 20161213, end: 20161216
  20. HYALURONIDASE [Suspect]
     Active Substance: HYALURONIDASE
     Indication: HER2 positive breast cancer
     Dosage: 600 MG EVERY 3 WEEKS
     Route: 058
     Dates: start: 20151124, end: 20151221
  21. HYALURONIDASE [Suspect]
     Active Substance: HYALURONIDASE
     Dosage: 600 MG EVERY 3 WEEKS (ON 15/NOV/2016, SHE RECEIVED MOST RECENT DOSE PRIOR TO AE/SAE  )
     Route: 058
     Dates: start: 20160531, end: 20161115
  22. CYCLOPHOSPHAMIDE [Suspect]
     Active Substance: CYCLOPHOSPHAMIDE
     Indication: Triple negative breast cancer
  23. ERIBULIN MESYLATE [Suspect]
     Active Substance: ERIBULIN MESYLATE
     Indication: Triple negative breast cancer
  24. PEGVORHYALURONIDASE ALFA [Suspect]
     Active Substance: PEGVORHYALURONIDASE ALFA
     Indication: HER2 positive breast cancer
     Dosage: 31/MAY/2016
     Route: 065
  25. PEGVORHYALURONIDASE ALFA [Suspect]
     Active Substance: PEGVORHYALURONIDASE ALFA
     Dosage: 24/NOV/2015, EVERY 3 WEEKS
     Route: 065
  26. ENOXAPARIN [Concomitant]
     Active Substance: ENOXAPARIN
     Indication: Embolism venous
     Dosage: 20 MG, 1X/DAY
     Route: 058
     Dates: start: 20160104, end: 20160106
  27. ENOXAPARIN [Concomitant]
     Active Substance: ENOXAPARIN
     Indication: Embolism venous
     Dosage: 20 MG, 1X/DAY
     Route: 058
     Dates: start: 20160106
  28. ENOXAPARIN [Concomitant]
     Active Substance: ENOXAPARIN
     Indication: Thrombosis prophylaxis
     Dosage: 20 MG, 1X/DAY
     Dates: start: 20170530
  29. OMEPRAZOLE [Concomitant]
     Active Substance: OMEPRAZOLE
     Dosage: 20 MG, 1X/DAY
     Route: 048
     Dates: start: 20170530
  30. OMEPRAZOLE [Concomitant]
     Active Substance: OMEPRAZOLE
     Dosage: 1 DF, DAILY
     Route: 048
  31. CALCIUM CARBONATE\CHOLECALCIFEROL [Concomitant]
     Active Substance: CALCIUM CARBONATE\CHOLECALCIFEROL
     Dosage: 1.5 G, 1X/DAY
     Route: 048
     Dates: start: 20101221, end: 201511
  32. CALCIUM CARBONATE\CHOLECALCIFEROL [Concomitant]
     Active Substance: CALCIUM CARBONATE\CHOLECALCIFEROL
     Dosage: 1 DF, DAILY
     Route: 048
     Dates: start: 20100121

REACTIONS (64)
  - Urinary tract infection [Fatal]
  - Ascites [Not Recovered/Not Resolved]
  - Hypokalaemia [Recovered/Resolved]
  - Vomiting [Recovered/Resolved]
  - Hypoalbuminaemia [Recovered/Resolved]
  - Protein total decreased [Recovered/Resolved]
  - Neutrophil count increased [Recovered/Resolved]
  - Aspartate aminotransferase increased [Recovered/Resolved]
  - Sensory loss [Not Recovered/Not Resolved]
  - Blood alkaline phosphatase increased [Recovered/Resolved with Sequelae]
  - Lymphopenia [Recovered/Resolved with Sequelae]
  - C-reactive protein increased [Unknown]
  - Alanine aminotransferase increased [Recovered/Resolved]
  - Balance disorder [Not Recovered/Not Resolved]
  - Cerebral haemorrhage [Recovered/Resolved with Sequelae]
  - Colitis ulcerative [Recovered/Resolved]
  - Crohn^s disease [Not Recovered/Not Resolved]
  - Rectal haemorrhage [Recovering/Resolving]
  - Dyspnoea [Recovered/Resolved]
  - Blood urea increased [Unknown]
  - Pyrexia [Recovered/Resolved with Sequelae]
  - Diarrhoea [Recovered/Resolved]
  - Hypernatraemia [Recovered/Resolved]
  - Constipation [Recovered/Resolved]
  - Nausea [Recovered/Resolved]
  - Fatigue [Recovered/Resolved]
  - Blood creatinine increased [Recovered/Resolved]
  - White blood cell count increased [Recovered/Resolved]
  - Agitation [Recovered/Resolved]
  - Pain [Recovered/Resolved]
  - Blood phosphorus increased [Recovered/Resolved]
  - Blood bilirubin increased [Recovered/Resolved]
  - Blood glucose increased [Recovered/Resolved]
  - Haemoglobin decreased [Not Recovered/Not Resolved]
  - Asthenia [Not Recovered/Not Resolved]
  - Irritability [Recovered/Resolved]
  - White blood cell count increased [Recovered/Resolved]
  - Tremor [Unknown]
  - Blood alkaline phosphatase increased [Recovered/Resolved]
  - Fatigue [Unknown]
  - Back pain [Recovered/Resolved]
  - Musculoskeletal stiffness [Not Recovered/Not Resolved]
  - Malaise [Not Recovered/Not Resolved]
  - Headache [Unknown]
  - Lymphopenia [Recovered/Resolved with Sequelae]
  - Sinusitis [Recovered/Resolved]
  - Neck pain [Recovered/Resolved]
  - Hypoalbuminaemia [Recovered/Resolved]
  - Blood alkaline phosphatase increased [Recovered/Resolved]
  - Sensory loss [Recovered/Resolved]
  - Crying [Recovered/Resolved]
  - Asthenia [Unknown]
  - Balance disorder [Unknown]
  - Injection site pain [Recovered/Resolved]
  - Ill-defined disorder [Unknown]
  - Muscle twitching [Unknown]
  - Hypertension [Recovered/Resolved]
  - Insomnia [Unknown]
  - Abdominal pain upper [Unknown]
  - Depressed mood [Unknown]
  - Hypertension [Recovered/Resolved with Sequelae]
  - Nausea [Recovered/Resolved]
  - Sensory disturbance [Not Recovered/Not Resolved]
  - Product administered at inappropriate site [Unknown]

NARRATIVE: CASE EVENT DATE: 20151203
